FAERS Safety Report 19775733 (Version 2)
Quarter: 2021Q3

REPORT INFORMATION
  Report Type: Spontaneous
  Country: IE (occurrence: IE)
  Receive Date: 20210901
  Receipt Date: 20210930
  Transmission Date: 20211014
  Serious: Yes (Death)
  Sender: FDA-Public Use
  Company Number: IE-IPSEN BIOPHARMACEUTICALS, INC.-2021-21125

PATIENT
  Sex: Female
  Weight: 58 kg

DRUGS (3)
  1. FLUOROURACIL. [Suspect]
     Active Substance: FLUOROURACIL
     Indication: PANCREATIC CARCINOMA METASTATIC
     Dosage: UNK
     Route: 042
     Dates: start: 20210622
  2. LEUCOVORIN. [Suspect]
     Active Substance: LEUCOVORIN
     Indication: PANCREATIC CARCINOMA METASTATIC
     Dosage: UNK
     Route: 042
     Dates: start: 20210622
  3. ONIVYDE [Suspect]
     Active Substance: IRINOTECAN HYDROCHLORIDE
     Indication: PANCREATIC CARCINOMA METASTATIC
     Dosage: 70 MG/M2, EVERY 2 WEEKS
     Route: 042
     Dates: start: 20210622, end: 20210803

REACTIONS (1)
  - Death [Fatal]

NARRATIVE: CASE EVENT DATE: 20210827
